FAERS Safety Report 9512362 (Version 1)
Quarter: 2013Q3

REPORT INFORMATION
  Report Type: Spontaneous
  Country: US (occurrence: US)
  Receive Date: 20130910
  Receipt Date: 20130910
  Transmission Date: 20140515
  Serious: No
  Sender: FDA-Public Use
  Company Number: -SAAVPROD-BMS19061621

PATIENT
  Age: 64 Year
  Sex: Female

DRUGS (1)
  1. AVAPRO TABS 300 MG [Suspect]
     Indication: HYPERTENSION
     Dates: start: 20130524

REACTIONS (4)
  - Sluggishness [Unknown]
  - Nausea [Unknown]
  - Dizziness [Unknown]
  - Feeling drunk [Unknown]
